FAERS Safety Report 12126141 (Version 8)
Quarter: 2018Q3

REPORT INFORMATION
  Report Type: Spontaneous
  Country: US (occurrence: US)
  Receive Date: 20160229
  Receipt Date: 20180716
  Transmission Date: 20181010
  Serious: Yes (Congenital Anomaly, Other)
  Sender: FDA-Public Use
  Company Number: PHEH2016US004688

PATIENT
  Sex: Female

DRUGS (1)
  1. ZOFRAN [Suspect]
     Active Substance: ONDANSETRON HYDROCHLORIDE
     Indication: FOETAL EXPOSURE DURING PREGNANCY
     Dosage: MOTHER^S DOSE FREQUENCY: PRN
     Route: 064

REACTIONS (32)
  - Ventricular septal defect [Unknown]
  - Hypermagnesaemia [Unknown]
  - Congenital anomaly [Unknown]
  - Injury [Unknown]
  - Rhinorrhoea [Unknown]
  - Pain [Unknown]
  - Emotional distress [Unknown]
  - Anhedonia [Unknown]
  - Hiccups [Unknown]
  - Contusion [Unknown]
  - Atrial septal defect [Unknown]
  - Premature baby [Unknown]
  - Sneezing [Unknown]
  - Cough [Unknown]
  - Poor feeding infant [Unknown]
  - Epistaxis [Unknown]
  - Hypotonia [Unknown]
  - Cardiac murmur [Unknown]
  - Anxiety [Unknown]
  - Pyrexia [Unknown]
  - Bradycardia neonatal [Unknown]
  - Neonatal hypotension [Unknown]
  - Jaundice neonatal [Unknown]
  - Lung infiltration [Unknown]
  - Heart disease congenital [Unknown]
  - Left-to-right cardiac shunt [Unknown]
  - Foetal exposure during pregnancy [Unknown]
  - Infantile apnoea [Unknown]
  - Deafness [Unknown]
  - Neonatal tachypnoea [Unknown]
  - Sepsis neonatal [Unknown]
  - Diarrhoea [Unknown]
